FAERS Safety Report 17805196 (Version 1)
Quarter: 2020Q2

REPORT INFORMATION
  Report Type: Report from Study
  Country: CO (occurrence: CO)
  Receive Date: 20200520
  Receipt Date: 20200520
  Transmission Date: 20200714
  Serious: Yes (Other)
  Sender: FDA-Public Use
  Company Number: CO-EMD SERONO-9163469

PATIENT
  Age: 10 Year
  Sex: Female

DRUGS (1)
  1. SAIZEN [Suspect]
     Active Substance: SOMATROPIN
     Indication: GROWTH HORMONE DEFICIENCY
     Route: 058
     Dates: start: 20190601, end: 2020

REACTIONS (4)
  - Off label use [Unknown]
  - Migraine [Unknown]
  - Scoliosis [Unknown]
  - Product dose omission [Unknown]

NARRATIVE: CASE EVENT DATE: 20190601
